FAERS Safety Report 25267875 (Version 1)
Quarter: 2025Q2

REPORT INFORMATION
  Report Type: Spontaneous
  Country: CN (occurrence: CN)
  Receive Date: 20250505
  Receipt Date: 20250505
  Transmission Date: 20250716
  Serious: Yes (Other)
  Sender: NOVARTIS
  Company Number: CN-002147023-NVSC2025CN069544

PATIENT
  Age: 70 Year
  Sex: Male

DRUGS (2)
  1. IPTACOPAN [Suspect]
     Active Substance: IPTACOPAN
     Indication: Paroxysmal nocturnal haemoglobinuria
     Dosage: 200 MG, BID
     Route: 048
     Dates: start: 20241101
  2. IPTACOPAN [Suspect]
     Active Substance: IPTACOPAN
     Dosage: UNK, QID (ONE CAPSULE EVERY TWO DAYS (ONE CAPSULE EVERY OTHER DAY))
     Route: 048

REACTIONS (5)
  - Bone pain [Recovering/Resolving]
  - Headache [Recovering/Resolving]
  - Pain in extremity [Not Recovered/Not Resolved]
  - Gait disturbance [Recovering/Resolving]
  - Off label use [Unknown]

NARRATIVE: CASE EVENT DATE: 20250101
